FAERS Safety Report 12502315 (Version 1)
Quarter: 2016Q2

REPORT INFORMATION
  Report Type: Report from Study
  Country: BR (occurrence: BR)
  Receive Date: 20160627
  Receipt Date: 20160627
  Transmission Date: 20160815
  Serious: Yes (Other)
  Sender: FDA-Public Use
  Company Number: BR-ABBVIE-16K-020-1657519-00

PATIENT
  Sex: Female
  Weight: 93 kg

DRUGS (5)
  1. FLUOXETINE [Concomitant]
     Active Substance: FLUOXETINE HYDROCHLORIDE
     Indication: ANXIETY
     Route: 048
     Dates: start: 2014
  2. RESPIDON [Concomitant]
     Active Substance: RISPERIDONE
     Indication: DEPRESSION
     Route: 048
     Dates: start: 2014
  3. CHLOROQUINE. [Concomitant]
     Active Substance: CHLOROQUINE
     Indication: ARTHRITIS
     Route: 048
     Dates: start: 2014
  4. MELLERIL [Concomitant]
     Indication: DEPRESSION
     Route: 048
     Dates: start: 2014
  5. HUMIRA [Suspect]
     Active Substance: ADALIMUMAB
     Indication: RHEUMATOID ARTHRITIS
     Route: 058
     Dates: start: 20120101, end: 20160506

REACTIONS (2)
  - Osteoarthritis [Recovered/Resolved]
  - Urinary tract infection [Recovered/Resolved]
